FAERS Safety Report 8371002-8 (Version None)
Quarter: 2012Q2

REPORT INFORMATION
  Report Type: 
  Country: None (occurrence: None)
  Receive Date: 20120518
  Receipt Date: 20120508
  Transmission Date: 20120825
  Serious: Yes (Hospitalization, Other)
  Sender: FDA-Public Use
  Company Number: US-ABBOTT-12P-163-0933770-00

PATIENT
  Sex: Female

DRUGS (1)
  1. HUMIRA [Suspect]
     Indication: CROHN'S DISEASE
     Dosage: DAY 1 DAY 1 LOADING DOSE
     Dates: start: 20120401, end: 20120401

REACTIONS (3)
  - ABSCESS RUPTURE [None]
  - PYREXIA [None]
  - SPLENIC ABSCESS [None]
